FAERS Safety Report 5427073-1 (Version None)
Quarter: 2007Q3

REPORT INFORMATION
  Report Type: 
  Country: None (occurrence: None)
  Receive Date: 20070828
  Receipt Date: 20070820
  Transmission Date: 20080115
  Serious: Yes (Other)
  Sender: FDA-Public Use
  Company Number: PHEH2005US09160

PATIENT
  Age: 40 Year
  Sex: Male
  Weight: 83.9 kg

DRUGS (8)
  1. ZOMETA [Suspect]
     Indication: HYPERCALCAEMIA
     Dosage: UNK,UNK
     Dates: start: 20040801
  2. DEPAKOTE [Concomitant]
  3. KLONOPIN [Concomitant]
  4. PREDNISONE TAB [Concomitant]
     Indication: SARCOIDOSIS
     Dosage: 30 MG, BID
     Route: 048
  5. BACTRIM DS [Concomitant]
     Indication: ANTIFUNGAL PROPHYLAXIS
     Dosage: 1 TAB TID
     Route: 048
  6. PREVACID [Concomitant]
     Dosage: 30 MG, QD
     Route: 048
  7. CYMBALTA [Concomitant]
  8. LEXAPRO [Concomitant]

REACTIONS (10)
  - BONE DISORDER [None]
  - FALL [None]
  - FIBULA FRACTURE [None]
  - GINGIVAL EROSION [None]
  - MEDICAL DEVICE REMOVAL [None]
  - OSTEONECROSIS [None]
  - PAIN IN JAW [None]
  - SKIN LACERATION [None]
  - SURGERY [None]
  - TOOTHACHE [None]
